FAERS Safety Report 6271282-9 (Version None)
Quarter: 2009Q3

REPORT INFORMATION
  Report Type: 
  Country: None (occurrence: None)
  Receive Date: 20090716
  Receipt Date: 20090716
  Transmission Date: 20100115
  Serious: Yes (Other)
  Sender: FDA-Public Use
  Company Number: None

PATIENT
  Age: 60 Year
  Sex: Male
  Weight: 72.5755 kg

DRUGS (2)
  1. AZOPT [Suspect]
     Indication: GLAUCOMA
     Dosage: 1 DROP 3 X DAY EYE DROP BOTH EYES
     Dates: start: 20090511
  2. AZOPT [Suspect]
     Indication: GLAUCOMA
     Dosage: 1 DROP 3 X DAY EYE DROP BOTH EYES
     Dates: start: 20090629

REACTIONS (1)
  - ASTHMA [None]
